FAERS Safety Report 10029572 (Version 1)
Quarter: 2014Q1

REPORT INFORMATION
  Report Type: Spontaneous
  Country: US (occurrence: None)
  Receive Date: 20140320
  Receipt Date: 20140320
  Transmission Date: 20141002
  Serious: Yes (Disabling)
  Sender: FDA-Public Use
  Company Number: None

PATIENT
  Age: 59 Year
  Sex: Male
  Weight: 115.67 kg

DRUGS (2)
  1. SIMVASTATIN 5 MG [Suspect]
     Indication: FAMILIAL RISK FACTOR
     Dosage: VARIED OVER TIME 5MG-20MG ?ONCE DAILY?TAKEN BY MOUTH
     Route: 048
     Dates: start: 20031222, end: 20121218
  2. LIPITOR - 20 MG [Suspect]

REACTIONS (8)
  - Muscle spasms [None]
  - Muscle spasms [None]
  - Muscular weakness [None]
  - Fatigue [None]
  - Toothache [None]
  - Myalgia [None]
  - Weight decreased [None]
  - Middle insomnia [None]
